FAERS Safety Report 19906286 (Version 1)
Quarter: 2021Q4

REPORT INFORMATION
  Report Type: Spontaneous
  Country: US (occurrence: US)
  Receive Date: 20211001
  Receipt Date: 20211001
  Transmission Date: 20220303
  Serious: No
  Sender: FDA-Public Use
  Company Number: US-SA-SAC20210927001000

PATIENT
  Age: 38 Year
  Sex: Female

DRUGS (6)
  1. DUPIXENT [Suspect]
     Active Substance: DUPILUMAB
     Indication: Asthma
     Dosage: 300 MG, QOW
     Route: 058
     Dates: start: 20210901
  2. TOPIRAMATE [Concomitant]
     Active Substance: TOPIRAMATE
  3. DIAZEPAM [Concomitant]
     Active Substance: DIAZEPAM
  4. ESZOPICLONE [Concomitant]
     Active Substance: ESZOPICLONE
  5. DROSPIRENONE [Concomitant]
     Active Substance: DROSPIRENONE
  6. BUDESONIDE\FORMOTEROL [Concomitant]
     Active Substance: BUDESONIDE\FORMOTEROL

REACTIONS (1)
  - Asthma [Not Recovered/Not Resolved]

NARRATIVE: CASE EVENT DATE: 20210921
